FAERS Safety Report 4402317-3 (Version None)
Quarter: 2004Q3

REPORT INFORMATION
  Report Type: 
  Country: None (occurrence: None)
  Receive Date: 20040720
  Receipt Date: 20040707
  Transmission Date: 20050211
  Serious: Yes (Disabling)
  Sender: FDA-Public Use
  Company Number: JP-BRISTOL-MYERS SQUIBB COMPANY-12636130

PATIENT
  Age: 59 Year
  Sex: Male

DRUGS (7)
  1. ZERIT [Suspect]
     Indication: HIV INFECTION
     Route: 048
     Dates: start: 20010331, end: 20031201
  2. EPIVIR [Suspect]
     Indication: HIV INFECTION
     Route: 048
     Dates: start: 20010331, end: 20031201
  3. VIRACEPT [Suspect]
     Indication: HIV INFECTION
     Route: 048
     Dates: start: 20010331, end: 20031201
  4. URINORM [Concomitant]
     Route: 048
     Dates: start: 20010331, end: 20040331
  5. BEZATOL SR [Concomitant]
     Route: 048
     Dates: start: 20010401, end: 20040331
  6. VOLTAREN [Concomitant]
     Route: 048
     Dates: start: 20021216, end: 20040331
  7. NORVASC [Concomitant]
     Route: 048
     Dates: start: 20030526, end: 20040331

REACTIONS (1)
  - ASEPTIC NECROSIS BONE [None]
